FAERS Safety Report 8611566-X (Version None)
Quarter: 2012Q3

REPORT INFORMATION
  Report Type: 
  Country: None (occurrence: None)
  Receive Date: 20120822
  Receipt Date: 20120817
  Transmission Date: 20120928
  Serious: Yes (Hospitalization)
  Sender: FDA-Public Use
  Company Number: PHHO2012US010491

PATIENT
  Sex: Male
  Weight: 78 kg

DRUGS (15)
  1. SPIRONOLACTONE [Suspect]
     Dosage: 25 MG, QD
     Dates: start: 20110801, end: 20120329
  2. IBUPROFEN [Suspect]
  3. VICTOZA [Suspect]
     Indication: TYPE 2 DIABETES MELLITUS
     Dosage: UNK
     Dates: start: 20120214, end: 20120324
  4. ASPIRIN [Concomitant]
  5. METFORMIN [Suspect]
     Dosage: 1000 MG, BID
     Dates: start: 20110901, end: 20120329
  6. CARVEDILOL [Concomitant]
     Indication: CARDIAC FAILURE CONGESTIVE
     Dosage: 25 MG, BID
     Dates: start: 20110801
  7. MULTI-VITAMINS [Concomitant]
  8. OMEPRAZOLE [Suspect]
     Indication: GASTROOESOPHAGEAL REFLUX DISEASE
     Dosage: 20 MG, QD
     Dates: start: 20110901, end: 20120329
  9. POTASSIUM [Concomitant]
  10. LOSARTAN POTASSIUM [Suspect]
     Dosage: 25 MG, BID
     Dates: start: 20111201, end: 20120329
  11. LASIX [Suspect]
     Dosage: 40 MG, QD
     Dates: start: 20110801, end: 20120329
  12. PLACEBO [Suspect]
     Indication: CARDIOVASCULAR EVENT PROPHYLAXIS
     Dosage: CODE NOT BROKEN
     Route: 058
     Dates: start: 20110929, end: 20120629
  13. ILARIS [Suspect]
     Indication: CARDIOVASCULAR EVENT PROPHYLAXIS
     Dosage: CODE NOT BROKEN
     Route: 058
     Dates: start: 20110929, end: 20120629
  14. BLINDED NO TREATMENT RECEIVED [Suspect]
     Indication: CARDIOVASCULAR EVENT PROPHYLAXIS
     Dosage: CODE NOT BROKEN
     Route: 058
     Dates: start: 20110929, end: 20120629
  15. CRESTOR [Concomitant]
     Indication: HYPERCHOLESTEROLAEMIA
     Dosage: 20 MG, QD
     Dates: start: 20090101

REACTIONS (1)
  - RENAL FAILURE ACUTE [None]
